FAERS Safety Report 6397937-3 (Version None)
Quarter: 2009Q4

REPORT INFORMATION
  Report Type: 
  Country: None (occurrence: None)
  Receive Date: 20091006
  Receipt Date: 20090925
  Transmission Date: 20100525
  Serious: Yes (Hospitalization)
  Sender: FDA-Public Use
  Company Number: TRP_06453_2009

PATIENT
  Sex: Male

DRUGS (5)
  1. RIBAVIRIN [Suspect]
     Indication: HEPATITIS C
     Dosage: 600 MG BID ORAL (400 MG BID ORAL)
     Route: 048
     Dates: start: 20080501, end: 20090101
  2. RIBAVIRIN [Suspect]
     Indication: HEPATITIS C
     Dosage: 600 MG BID ORAL (400 MG BID ORAL)
     Route: 048
     Dates: start: 20090101, end: 20090921
  3. INFERGEN [Suspect]
     Indication: HEPATITIS C
     Dosage: 15 UG QD SUBCUTANEOUS
     Route: 058
     Dates: start: 20080829, end: 20090921
  4. PEG-INTRON [Suspect]
     Indication: HEPATITIS C
     Dosage: DF
     Dates: start: 20080501, end: 20080801
  5. CELEXA [Concomitant]

REACTIONS (9)
  - ANAEMIA [None]
  - CONFUSIONAL STATE [None]
  - DEHYDRATION [None]
  - FALL [None]
  - MUSCLE RIGIDITY [None]
  - PROGRESSIVE MULTIFOCAL LEUKOENCEPHALOPATHY [None]
  - PYREXIA [None]
  - TACHYCARDIA [None]
  - VOMITING [None]
